FAERS Safety Report 15327759 (Version 1)
Quarter: 2018Q4

REPORT INFORMATION
  Report Type: Spontaneous
  Country: US (occurrence: US)
  Receive Date: 20180828
  Receipt Date: 20180828
  Transmission Date: 20190204
  Serious: Yes (Hospitalization)
  Sender: FDA-Public Use
  Company Number: US-ALLERGAN-1614370

PATIENT
  Age: 37 Year
  Sex: Female

DRUGS (1)
  1. FIORICET [Suspect]
     Active Substance: ACETAMINOPHEN\BUTALBITAL\CAFFEINE
     Indication: HEADACHE
     Dosage: 750 MG TO 1000 MG, QD
     Route: 065

REACTIONS (17)
  - Incoherent [Recovered/Resolved]
  - Skull fractured base [Unknown]
  - Insomnia [Recovered/Resolved]
  - Hallucination, visual [Recovered/Resolved]
  - Generalised tonic-clonic seizure [Recovered/Resolved]
  - Disorientation [Recovered/Resolved]
  - Delirium [Recovered/Resolved]
  - Hyperhidrosis [Recovered/Resolved]
  - Tongue injury [Unknown]
  - Skin abrasion [Unknown]
  - Intentional product use issue [Unknown]
  - Psychomotor hyperactivity [Recovered/Resolved]
  - Disturbance in attention [Recovered/Resolved]
  - Contusion [Unknown]
  - Headache [Unknown]
  - Extradural haematoma [Unknown]
  - Hyperreflexia [Recovered/Resolved]

NARRATIVE: CASE EVENT DATE: 200407
